FAERS Safety Report 8048131-1 (Version None)
Quarter: 2012Q1

REPORT INFORMATION
  Report Type: 
  Country: None (occurrence: None)
  Receive Date: 20120112
  Receipt Date: 20120112
  Transmission Date: 20120608
  Serious: Yes (Other)
  Sender: FDA-Public Use
  Company Number: None

PATIENT
  Sex: Male
  Weight: 78.9259 kg

DRUGS (2)
  1. PROTONIX [Suspect]
     Indication: BARRETT'S OESOPHAGUS
     Dosage: 40 MG. DELAYED RELEASE 1 BY MOUTH
     Route: 048
     Dates: start: 20090506
  2. PROTONIX [Suspect]
     Indication: BARRETT'S OESOPHAGUS
     Dosage: 40 MG. DELAYED RELEASE 1 BY MOUTH
     Route: 048
     Dates: start: 20090304

REACTIONS (3)
  - NAUSEA [None]
  - VOMITING [None]
  - MALAISE [None]
